FAERS Safety Report 20302316 (Version 2)
Quarter: 2022Q1

REPORT INFORMATION
  Report Type: Spontaneous
  Country: JP (occurrence: JP)
  Receive Date: 20220106
  Receipt Date: 20220120
  Transmission Date: 20220423
  Serious: No
  Sender: FDA-Public Use
  Company Number: JP-NBI-J202200003BIPI

PATIENT
  Age: 74 Year
  Sex: Female

DRUGS (1)
  1. OFEV [Suspect]
     Active Substance: NINTEDANIB
     Indication: Interstitial lung disease
     Route: 048
     Dates: start: 202112

REACTIONS (1)
  - Otitis media chronic [Recovered/Resolved]

NARRATIVE: CASE EVENT DATE: 20211214
